FAERS Safety Report 9956182 (Version 1)
Quarter: 2014Q1

REPORT INFORMATION
  Report Type: Report from Study
  Country: US (occurrence: US)
  Receive Date: 20140304
  Receipt Date: 20140304
  Transmission Date: 20141002
  Serious: No
  Sender: FDA-Public Use
  Company Number: US-ABBVIE-13P-163-1087774-00

PATIENT
  Age: 58 Year
  Sex: Female

DRUGS (10)
  1. HUMIRA [Suspect]
     Indication: PSORIASIS
     Dates: start: 20130405, end: 20130405
  2. HUMIRA [Suspect]
     Dates: start: 20130412, end: 20130412
  3. HUMIRA [Suspect]
     Dates: start: 20130426
  4. DILANTIN [Concomitant]
     Indication: EPILEPSY
  5. SINEMET [Concomitant]
     Indication: PARKINSON^S DISEASE
     Dosage: 25/100MG, 2 IN THE MORNING
  6. BYSTOLIC [Concomitant]
     Indication: HYPERTENSION
  7. LISINOPRIL [Concomitant]
     Indication: HYPERTENSION
  8. SERTRALINE [Concomitant]
     Indication: DEPRESSION
  9. ALBUTEROL [Concomitant]
     Indication: ASTHMA
     Dosage: NEBULIZER
  10. COMBIVENT [Concomitant]
     Indication: ASTHMA
     Dosage: INHALER

REACTIONS (1)
  - Bronchitis [Recovering/Resolving]
